FAERS Safety Report 7038564-4 (Version None)
Quarter: 2010Q4

REPORT INFORMATION
  Report Type: 
  Country: None (occurrence: None)
  Receive Date: 20101011
  Receipt Date: 20100720
  Transmission Date: 20110411
  Serious: No
  Sender: FDA-Public Use
  Company Number: US-PFIZER INC-2010090813

PATIENT
  Sex: Female

DRUGS (2)
  1. NEURONTIN [Suspect]
     Indication: SLEEP DISORDER
     Dosage: 800 MG, DAILY AT BED TIME
     Route: 048
     Dates: start: 20040101
  2. GABAPENTIN [Suspect]
     Indication: SLEEP DISORDER
     Dosage: 400 MG, DAILY
     Route: 048

REACTIONS (1)
  - PALPITATIONS [None]
